FAERS Safety Report 14721274 (Version 3)
Quarter: 2018Q2

REPORT INFORMATION
  Report Type: Report from Study
  Country: FR (occurrence: FR)
  Receive Date: 20180405
  Receipt Date: 20180419
  Transmission Date: 20180711
  Serious: Yes (Hospitalization, Other)
  Sender: FDA-Public Use
  Company Number: FR-SEATTLE GENETICS-2017SGN01717

PATIENT
  Age: 75 Year
  Sex: Male
  Weight: 66 kg

DRUGS (7)
  1. BRENTUXIMAB VEDOTIN-MPI [Suspect]
     Active Substance: BRENTUXIMAB VEDOTIN
     Dosage: 119 MG, UNK
     Route: 042
     Dates: start: 20170509
  2. PARACETAMOL [Concomitant]
     Active Substance: ACETAMINOPHEN
     Indication: MYCOSIS FUNGOIDES
     Dosage: 1 G, UNK
     Route: 042
     Dates: start: 20170410, end: 20170510
  3. BRENTUXIMAB VEDOTIN-MPI [Suspect]
     Active Substance: BRENTUXIMAB VEDOTIN
     Indication: MYCOSIS FUNGOIDES
     Dosage: 122 MG, UNK
     Route: 042
     Dates: start: 20170410, end: 20170509
  4. BENDAMUSTINE [Suspect]
     Active Substance: BENDAMUSTINE
     Indication: MYCOSIS FUNGOIDES
     Dosage: 162 MG, UNK
     Route: 042
     Dates: start: 20170411, end: 20170509
  5. BENDAMUSTINE [Suspect]
     Active Substance: BENDAMUSTINE
     Dosage: 160 MG, UNK
     Route: 042
     Dates: start: 20170608, end: 20170608
  6. ONDANSETRON [Concomitant]
     Active Substance: ONDANSETRON
     Indication: MYCOSIS FUNGOIDES
     Dosage: 8 MG, UNK
     Route: 042
     Dates: start: 20170410, end: 20170509
  7. DEXCHLORPHENIRAMINE MALEATE. [Concomitant]
     Active Substance: DEXCHLORPHENIRAMINE MALEATE
     Indication: MYCOSIS FUNGOIDES
     Dosage: 5 MG, UNK
     Route: 042
     Dates: start: 20170410, end: 20170509

REACTIONS (8)
  - Anaphylactoid reaction [Recovering/Resolving]
  - Chills [Recovering/Resolving]
  - Hyperthermia [Recovering/Resolving]
  - Rash erythematous [Recovering/Resolving]
  - Weight decreased [Unknown]
  - Off label use [Unknown]
  - Cytokine release syndrome [Recovered/Resolved]
  - Anaphylactic reaction [Recovered/Resolved]

NARRATIVE: CASE EVENT DATE: 20170410
